FAERS Safety Report 6052015-8 (Version None)
Quarter: 2009Q1

REPORT INFORMATION
  Report Type: 
  Country: None (occurrence: None)
  Receive Date: 20090126
  Receipt Date: 20090122
  Transmission Date: 20090719
  Serious: Yes (Hospitalization)
  Sender: FDA-Public Use
  Company Number: US-KINGPHARMUSA00001-K200900058

PATIENT
  Age: 44 Year
  Sex: Male

DRUGS (5)
  1. ALTACE [Suspect]
     Indication: HYPERTENSION
     Dosage: 5 MG, QD
     Route: 048
     Dates: start: 20081117, end: 20081119
  2. ALTACE [Suspect]
     Dosage: 2.5 MG, QD
     Dates: start: 20081120, end: 20081123
  3. NOVAMINSULFON [Suspect]
     Indication: PAIN
     Dosage: UP TO 30 DROPS A DAY
     Route: 048
     Dates: start: 20081118, end: 20081123
  4. HYDROCHLOROTHIAZIDE [Suspect]
     Indication: HYPERTENSION
     Dosage: 25 MG, QD
     Dates: start: 20081117, end: 20081119
  5. IRBESARTAN [Suspect]
     Indication: HYPERTENSION
     Dosage: 150 MG, UNK
     Dates: start: 20081124

REACTIONS (11)
  - ASTHENIA [None]
  - ERYTHEMA [None]
  - FEELING HOT [None]
  - FORMICATION [None]
  - HYPERSENSITIVITY [None]
  - HYPERTENSIVE CRISIS [None]
  - HYPOAESTHESIA [None]
  - PRURITUS [None]
  - RASH [None]
  - RESTLESSNESS [None]
  - TACHYCARDIA [None]
